FAERS Safety Report 7052240-3 (Version None)
Quarter: 2010Q4

REPORT INFORMATION
  Report Type: 
  Country: None (occurrence: None)
  Receive Date: 20101019
  Receipt Date: 20101013
  Transmission Date: 20110411
  Serious: Yes (Other)
  Sender: FDA-Public Use
  Company Number: JP-B.I. PHARMACEUTICALS,INC./RIDGEFIELD-2010-BP-11580NB

PATIENT
  Age: 84 Year
  Sex: Male

DRUGS (2)
  1. MICARDIS [Suspect]
     Route: 065
     Dates: start: 20100801
  2. FLUITRAN [Concomitant]

REACTIONS (1)
  - PEMPHIGUS [None]
